FAERS Safety Report 16066386 (Version 2)
Quarter: 2019Q1

REPORT INFORMATION
  Report Type: Spontaneous
  Country: US (occurrence: US)
  Receive Date: 20190313
  Receipt Date: 20190319
  Transmission Date: 20190418
  Serious: Yes (Other)
  Sender: FDA-Public Use
  Company Number: US-ASTRAZENECA-2018SF34262

PATIENT
  Sex: Male
  Weight: 69.4 kg

DRUGS (11)
  1. CLONIDINE. [Concomitant]
     Active Substance: CLONIDINE
     Route: 065
  2. PRILOSEC [Suspect]
     Active Substance: OMEPRAZOLE MAGNESIUM
     Route: 048
     Dates: start: 20010101, end: 20171101
  3. ASPIRIN. [Concomitant]
     Active Substance: ASPIRIN
     Route: 065
  4. FUROSEMIDE. [Concomitant]
     Active Substance: FUROSEMIDE
     Route: 065
  5. FAMOTIDINE. [Concomitant]
     Active Substance: FAMOTIDINE
     Route: 065
  6. LISINOPRIL. [Concomitant]
     Active Substance: LISINOPRIL
     Route: 065
  7. HYDRALAZINE [Concomitant]
     Active Substance: HYDRALAZINE HYDROCHLORIDE
     Route: 065
  8. NEXIUM [Suspect]
     Active Substance: ESOMEPRAZOLE MAGNESIUM
     Route: 048
  9. COREG [Concomitant]
     Active Substance: CARVEDILOL
     Route: 065
  10. NIFEDIPINE. [Concomitant]
     Active Substance: NIFEDIPINE
     Route: 065
  11. NORVASC [Concomitant]
     Active Substance: AMLODIPINE BESYLATE
     Route: 065

REACTIONS (4)
  - Renal injury [Unknown]
  - Chronic kidney disease [Unknown]
  - End stage renal disease [Unknown]
  - Nephrogenic anaemia [Unknown]
